FAERS Safety Report 24137803 (Version 1)
Quarter: 2024Q3

REPORT INFORMATION
  Report Type: Spontaneous
  Country: US (occurrence: US)
  Receive Date: 20240725
  Receipt Date: 20240725
  Transmission Date: 20241017
  Serious: No
  Sender: MERCK
  Company Number: US-009507513-2407USA012760

PATIENT
  Age: 82 Year
  Sex: Female

DRUGS (2)
  1. KEYTRUDA [Suspect]
     Active Substance: PEMBROLIZUMAB
     Dosage: UNK
  2. LENVATINIB MESYLATE [Suspect]
     Active Substance: LENVATINIB MESYLATE
     Indication: Endometrial cancer
     Dosage: 8 MILLIGRAM, QD
     Route: 048
     Dates: start: 202405

REACTIONS (4)
  - Weight decreased [Unknown]
  - Stomatitis [Unknown]
  - Asthenia [Unknown]
  - Product use issue [Unknown]

NARRATIVE: CASE EVENT DATE: 20240501
